FAERS Safety Report 8415826-7 (Version None)
Quarter: 2012Q2

REPORT INFORMATION
  Report Type: 
  Country: None (occurrence: None)
  Receive Date: 20120530
  Receipt Date: 20120517
  Transmission Date: 20120825
  Serious: Yes (Other)
  Sender: FDA-Public Use
  Company Number: 2012AT000063

PATIENT
  Age: 85 Year
  Sex: Female

DRUGS (1)
  1. ISOSORBIDE DINITRATE [Suspect]
     Indication: ANGINA PECTORIS
     Dosage: 40 MG;TID
     Dates: start: 19800101

REACTIONS (3)
  - BLOOD POTASSIUM DECREASED [None]
  - GLAUCOMA [None]
  - HYPOACUSIS [None]
